FAERS Safety Report 5655365-X (Version None)
Quarter: 2008Q1

REPORT INFORMATION
  Report Type: 
  Country: None (occurrence: None)
  Receive Date: 20080307
  Receipt Date: 20080229
  Transmission Date: 20080703
  Serious: Yes (Death)
  Sender: FDA-Public Use
  Company Number: JP-MERCK-0803USA00631

PATIENT
  Age: 72 Year
  Sex: Male

DRUGS (4)
  1. PRIMAXIN [Suspect]
     Route: 042
     Dates: start: 20080218, end: 20080218
  2. NU-LOTAN [Concomitant]
     Route: 048
  3. FAMOTIDINE [Concomitant]
     Route: 065
  4. AMLODIN [Concomitant]
     Route: 048

REACTIONS (2)
  - ATRIAL FIBRILLATION [None]
  - RASH [None]
